FAERS Safety Report 18191772 (Version 1)
Quarter: 2020Q3

REPORT INFORMATION
  Report Type: Spontaneous
  Country: US (occurrence: US)
  Receive Date: 20200824
  Receipt Date: 20200824
  Transmission Date: 20201103
  Serious: Yes (Hospitalization)
  Sender: FDA-Public Use
  Company Number: None

PATIENT
  Sex: Male

DRUGS (1)
  1. CINACALCET 30MG [Suspect]
     Active Substance: CINACALCET
     Route: 048
     Dates: start: 20171211

REACTIONS (1)
  - Internal haemorrhage [None]
